FAERS Safety Report 4940550-2 (Version None)
Quarter: 2006Q1

REPORT INFORMATION
  Report Type: 
  Country: None (occurrence: None)
  Receive Date: 20060112
  Receipt Date: 20050917
  Transmission Date: 20060701
  Serious: Yes (Other)
  Sender: FDA-Public Use
  Company Number: 384460

PATIENT
  Sex: Male

DRUGS (8)
  1. FUZEON [Suspect]
     Indication: HIV INFECTION
     Dosage: OTHER
     Dates: start: 20040430
  2. HALDOL SOLUTAB [Suspect]
     Indication: DRUG USE FOR UNKNOWN INDICATION
  3. COGENTIN [Suspect]
     Indication: DRUG USE FOR UNKNOWN INDICATION
  4. NORVIR [Concomitant]
  5. VIRAMUNE [Concomitant]
  6. EPIVIR [Concomitant]
  7. VIREAD [Concomitant]
  8. REYATAZ [Concomitant]

REACTIONS (3)
  - FATIGUE [None]
  - INJECTION SITE REACTION [None]
  - SOMNOLENCE [None]
